FAERS Safety Report 12962366 (Version 1)
Quarter: 2016Q4

REPORT INFORMATION
  Report Type: Report from Study
  Country: None (occurrence: ES)
  Receive Date: 20161121
  Receipt Date: 20161121
  Transmission Date: 20170207
  Serious: Yes (Hospitalization)
  Sender: FDA-Public Use
  Company Number: ES-ABBVIE-16P-144-1786194-00

PATIENT
  Age: 63 Year
  Sex: Male

DRUGS (7)
  1. EVEROLIMUS [Concomitant]
     Active Substance: EVEROLIMUS
     Indication: RENAL TRANSPLANT
     Route: 065
     Dates: start: 201604, end: 201605
  2. MYCOPHENOLATE MOFETIL. [Concomitant]
     Active Substance: MYCOPHENOLATE MOFETIL
     Indication: RENAL TRANSPLANT
     Route: 065
     Dates: start: 20160825
  3. EXVIERA [Suspect]
     Active Substance: DASABUVIR
     Indication: HEPATITIS C
     Route: 048
     Dates: start: 20160419, end: 20160711
  4. TACROLIMUS. [Suspect]
     Active Substance: TACROLIMUS
     Route: 065
     Dates: start: 201605, end: 20160825
  5. VIEKIRAX [Suspect]
     Active Substance: OMBITASVIR\PARITAPREVIR\RITONAVIR
     Indication: HEPATITIS C
     Route: 048
     Dates: start: 20160419, end: 20160711
  6. TACROLIMUS. [Suspect]
     Active Substance: TACROLIMUS
     Indication: RENAL TRANSPLANT
     Route: 065
     Dates: end: 201604
  7. PREDNISONA [Concomitant]
     Active Substance: PREDNISONE
     Indication: RENAL TRANSPLANT
     Route: 065
     Dates: start: 20160825

REACTIONS (4)
  - Burning sensation [Not Recovered/Not Resolved]
  - Peripheral swelling [Not Recovered/Not Resolved]
  - Pain in extremity [Not Recovered/Not Resolved]
  - Squamous cell carcinoma [Recovered/Resolved]

NARRATIVE: CASE EVENT DATE: 201605
